FAERS Safety Report 7809948-9 (Version None)
Quarter: 2011Q4

REPORT INFORMATION
  Report Type: 
  Country: None (occurrence: None)
  Receive Date: 20111012
  Receipt Date: 20111006
  Transmission Date: 20120403
  Serious: Yes (Hospitalization)
  Sender: FDA-Public Use
  Company Number: NZ-B.I. PHARMACEUTICALS,INC./RIDGEFIELD-2011-AU-01689AU

PATIENT
  Age: 88 Year
  Sex: Male

DRUGS (2)
  1. DOXYCYCLINE [Concomitant]
     Dates: start: 20110704
  2. PRADAXA [Suspect]
     Indication: THROMBOSIS PROPHYLAXIS
     Dosage: 220 MG
     Dates: start: 20110704

REACTIONS (2)
  - HEPATITIS ACUTE [None]
  - HEPATIC FUNCTION ABNORMAL [None]
